FAERS Safety Report 25586396 (Version 1)
Quarter: 2025Q3

REPORT INFORMATION
  Report Type: Spontaneous
  Country: US (occurrence: None)
  Receive Date: 20250719
  Receipt Date: 20250719
  Transmission Date: 20251020
  Serious: No
  Sender: FDA-CTU
  Company Number: None

PATIENT
  Age: 82 Year
  Sex: Female

DRUGS (1)
  1. MIEBO [Suspect]
     Active Substance: PERFLUOROHEXYLOCTANE
     Dosage: FREQUENCY : 4 TIMES A DAY;?
     Route: 047

REACTIONS (2)
  - Eye pain [None]
  - Instillation site pain [None]

NARRATIVE: CASE EVENT DATE: 20250623
